FAERS Safety Report 6385293-6 (Version None)
Quarter: 2009Q4

REPORT INFORMATION
  Report Type: 
  Country: None (occurrence: None)
  Receive Date: 20091002
  Receipt Date: 20080819
  Transmission Date: 20100525
  Serious: No
  Sender: FDA-Public Use
  Company Number: US-ASTRAZENECA-2008UW16945

PATIENT
  Age: 63 Year
  Sex: Female
  Weight: 68 kg

DRUGS (7)
  1. ARIMIDEX [Suspect]
     Indication: BREAST CANCER STAGE I
     Route: 048
     Dates: start: 20070601
  2. EFFEXOR [Concomitant]
  3. ATIVAN [Concomitant]
  4. PANCREATIC ENZYMES [Concomitant]
  5. PRILOSEC [Concomitant]
  6. CALCIUM WITH VITAMIN D [Concomitant]
  7. MAGNESIUM [Concomitant]

REACTIONS (6)
  - ARTHRALGIA [None]
  - HOT FLUSH [None]
  - ILL-DEFINED DISORDER [None]
  - INSOMNIA [None]
  - NIGHT SWEATS [None]
  - PAIN [None]
